FAERS Safety Report 4783162-6 (Version None)
Quarter: 2005Q3

REPORT INFORMATION
  Report Type: 
  Country: None (occurrence: None)
  Receive Date: 20050929
  Receipt Date: 20050926
  Transmission Date: 20060218
  Serious: Yes (Other)
  Sender: FDA-Public Use
  Company Number: 2005-09-0939

PATIENT
  Age: 50 Year
  Sex: Female

DRUGS (4)
  1. COREG [Suspect]
     Indication: HYPERTENSION
     Route: 065
  2. PEG-INTRON [Suspect]
     Indication: HEPATITIS C
     Dosage: 118.4MCG SEE DOSAGE TEXT
     Route: 065
     Dates: start: 20050801
  3. REBETOL [Suspect]
     Indication: HEPATITIS C
     Route: 048
     Dates: start: 20050801
  4. HYDROCHLOROTHIAZIDE [Suspect]
     Indication: HYPERTENSION
     Route: 065

REACTIONS (8)
  - ASTHENIA [None]
  - HYPOTENSION [None]
  - INCORRECT DOSE ADMINISTERED [None]
  - LETHARGY [None]
  - OVERDOSE [None]
  - PULMONARY CONGESTION [None]
  - SYNCOPE [None]
  - VISUAL DISTURBANCE [None]
